FAERS Safety Report 9265300 (Version 1)
Quarter: 2013Q2

REPORT INFORMATION
  Report Type: Spontaneous
  Country: GR (occurrence: GR)
  Receive Date: 20130501
  Receipt Date: 20130501
  Transmission Date: 20140414
  Serious: Yes (Other)
  Sender: FDA-Public Use
  Company Number: GR-PFIZER INC-2013130973

PATIENT
  Age: 46 Year
  Sex: Female

DRUGS (1)
  1. CYTOTEC [Suspect]
     Indication: UTERINE DISORDER
     Dosage: UNK
     Dates: start: 201302

REACTIONS (5)
  - Thyroid disorder [Unknown]
  - Asthenia [Unknown]
  - Heart rate increased [Unknown]
  - Back pain [Unknown]
  - Off label use [Unknown]
